FAERS Safety Report 20553472 (Version 2)
Quarter: 2022Q1

REPORT INFORMATION
  Report Type: Spontaneous
  Country: JP (occurrence: JP)
  Receive Date: 20220304
  Receipt Date: 20220312
  Transmission Date: 20220423
  Serious: Yes (Other)
  Sender: FDA-Public Use
  Company Number: JP-UNITED THERAPEUTICS-UNT-2021-023171

PATIENT
  Age: 21 Year
  Sex: Female

DRUGS (7)
  1. UNITUXIN [Suspect]
     Active Substance: DINUTUXIMAB
     Indication: Neuroblastoma
     Dosage: UNK, CYCLICAL (CYCLE 1)
     Route: 041
     Dates: start: 20211104, end: 20211107
  2. UNITUXIN [Suspect]
     Active Substance: DINUTUXIMAB
     Dosage: UNK, CYCLICAL (CYCLE 2)
     Route: 041
     Dates: start: 20211206
  3. UNITUXIN [Suspect]
     Active Substance: DINUTUXIMAB
     Dosage: UNK, CYCLICAL (CYCLE 3)
     Route: 041
     Dates: start: 20220102
  4. UNITUXIN [Suspect]
     Active Substance: DINUTUXIMAB
     Dosage: UNK, CYCLICAL (CYCLE 4)
     Route: 041
  5. MORPHINE HYDROCHLORIDE [Suspect]
     Active Substance: MORPHINE HYDROCHLORIDE
     Indication: Back pain
     Dosage: UNK
     Route: 042
     Dates: start: 202111
  6. ALDESLEUKIN [Concomitant]
     Active Substance: ALDESLEUKIN
     Indication: Product used for unknown indication
     Dosage: UNK
     Route: 065
     Dates: start: 202111
  7. ALDESLEUKIN [Concomitant]
     Active Substance: ALDESLEUKIN
     Dosage: UNK UNK, CYCLICAL (CYCLE 4)
     Route: 065
     Dates: start: 20220201

REACTIONS (15)
  - Metastasis [Recovering/Resolving]
  - Somnolence [Recovered/Resolved]
  - Constipation [Recovered/Resolved]
  - C-reactive protein increased [Recovered/Resolved]
  - Malaise [Recovered/Resolved]
  - Hypoxia [Recovered/Resolved]
  - Back pain [Recovered/Resolved]
  - Pyrexia [Recovered/Resolved]
  - Hypotension [Recovered/Resolved]
  - Vomiting [Recovered/Resolved]
  - Abdominal pain [Recovered/Resolved]
  - Neurone-specific enolase increased [Unknown]
  - Nausea [Recovered/Resolved]
  - Headache [Recovered/Resolved]
  - Blood albumin decreased [Recovered/Resolved]

NARRATIVE: CASE EVENT DATE: 20211104
